FAERS Safety Report 14218098 (Version 2)
Quarter: 2017Q4

REPORT INFORMATION
  Report Type: Spontaneous
  Country: RU (occurrence: RU)
  Receive Date: 20171123
  Receipt Date: 20171128
  Transmission Date: 20180321
  Serious: Yes (Other)
  Sender: FDA-Public Use
  Company Number: RU-ASTRAZENECA-2017SF17941

PATIENT
  Age: 64 Year
  Sex: Male
  Weight: 76 kg

DRUGS (7)
  1. THROMBO ASS [Concomitant]
     Active Substance: ASPIRIN
     Dates: start: 20170507
  2. BRILINTA [Suspect]
     Active Substance: TICAGRELOR
     Indication: MYOCARDIAL INFARCTION
     Route: 048
     Dates: start: 20170509
  3. OMEZ [Concomitant]
     Active Substance: OMEPRAZOLE
     Dates: start: 2017
  4. ENALAPRIL [Concomitant]
     Active Substance: ENALAPRIL
     Dates: start: 20170507
  5. NEUROMULTIVIT [Concomitant]
     Active Substance: CYANOCOBALAMIN\PYRIDOXINE\THIAMINE
     Dates: start: 2017
  6. ATORVASTATIN [Concomitant]
     Active Substance: ATORVASTATIN
  7. BISOPROLOL [Concomitant]
     Active Substance: BISOPROLOL

REACTIONS (2)
  - Skin cancer [Not Recovered/Not Resolved]
  - Thyroid cancer [Unknown]

NARRATIVE: CASE EVENT DATE: 2017
